FAERS Safety Report 11921499 (Version 3)
Quarter: 2016Q1

REPORT INFORMATION
  Report Type: Spontaneous
  Country: JP (occurrence: JP)
  Receive Date: 20160115
  Receipt Date: 20160205
  Transmission Date: 20160526
  Serious: Yes (Death, Other)
  Sender: FDA-Public Use
  Company Number: PHJP2016JP000814

PATIENT
  Age: 81 Year
  Sex: Male
  Weight: 165 kg

DRUGS (12)
  1. VELCADE [Suspect]
     Active Substance: BORTEZOMIB
     Indication: PLASMA CELL MYELOMA
     Dosage: 1 MG, QD
     Route: 042
     Dates: start: 20151218
  2. FARYDAK [Suspect]
     Active Substance: PANOBINOSTAT
     Dosage: 10 MG, QD
     Route: 048
     Dates: start: 20151223
  3. VELCADE [Suspect]
     Active Substance: BORTEZOMIB
     Dosage: 1.5 MG, QD
     Route: 042
     Dates: start: 20151225
  4. DECADRON [Suspect]
     Active Substance: DEXAMETHASONE
     Dosage: 1 MG, QD
     Route: 048
     Dates: start: 20160101
  5. FARYDAK [Suspect]
     Active Substance: PANOBINOSTAT
     Dosage: 10 MG, QD
     Route: 048
     Dates: start: 20151225
  6. VELCADE [Suspect]
     Active Substance: BORTEZOMIB
     Dosage: 1.5 MG, QD
     Route: 042
     Dates: start: 20151222
  7. DECADRON [Suspect]
     Active Substance: DEXAMETHASONE
     Indication: PLASMA CELL MYELOMA
     Dosage: 1 MG, QD
     Route: 048
     Dates: start: 20151223
  8. DECADRON [Suspect]
     Active Substance: DEXAMETHASONE
     Dosage: 1 MG, QD
     Route: 048
     Dates: start: 20151228
  9. DECADRON [Suspect]
     Active Substance: DEXAMETHASONE
     Dosage: 1 MG, QD
     Route: 048
     Dates: start: 20151230
  10. NIFEDIPINE. [Concomitant]
     Active Substance: NIFEDIPINE
     Indication: PRODUCT USED FOR UNKNOWN INDICATION
     Route: 065
  11. FARYDAK [Suspect]
     Active Substance: PANOBINOSTAT
     Indication: PLASMA CELL MYELOMA
     Dosage: 10 MG, QD
     Route: 048
     Dates: start: 20151221
  12. FARYDAK [Suspect]
     Active Substance: PANOBINOSTAT
     Dosage: 10 MG, QD
     Route: 048
     Dates: start: 20151228

REACTIONS (9)
  - Depressed level of consciousness [Fatal]
  - Rash [Unknown]
  - Dyspnoea [Fatal]
  - Cardiac failure [Fatal]
  - Pyrexia [Fatal]
  - Cytopenia [Unknown]
  - Parotid gland enlargement [Unknown]
  - Renal impairment [Unknown]
  - Pneumonia [Fatal]

NARRATIVE: CASE EVENT DATE: 20151230
